FAERS Safety Report 6805055-2 (Version None)
Quarter: 2010Q2

REPORT INFORMATION
  Report Type: 
  Country: None (occurrence: None)
  Receive Date: 20100628
  Receipt Date: 20070725
  Transmission Date: 20101027
  Serious: No
  Sender: FDA-Public Use
  Company Number: US-PFIZER INC-2007061574

PATIENT
  Sex: Female
  Weight: 68.04 kg

DRUGS (2)
  1. XALATAN [Suspect]
     Indication: ABNORMAL SENSATION IN EYE
     Dates: end: 20060101
  2. DRUG USED IN DIABETES [Concomitant]

REACTIONS (1)
  - WEIGHT DECREASED [None]
